FAERS Safety Report 5445837-5 (Version None)
Quarter: 2007Q3

REPORT INFORMATION
  Report Type: 
  Country: None (occurrence: None)
  Receive Date: 20070904
  Receipt Date: 20070821
  Transmission Date: 20080115
  Serious: Yes (Hospitalization)
  Sender: FDA-Public Use
  Company Number: GXKR2007AT07216

PATIENT
  Age: 69 Week
  Sex: Female

DRUGS (6)
  1. DOXAZOSIN MESYLATE [Suspect]
     Dosage: 4 MG, ORAL
     Route: 048
  2. ACETYLSALICYLIC ACID (NGX) (ACETYLSALICYLIC ACID) UNKNOWN, 100MG [Suspect]
     Dosage: 100 MG, ORAL
     Route: 048
  3. LAMICTAL [Suspect]
     Indication: HYPOMANIA
     Dosage: 12.5 MG, ORAL; 25 MG, ORAL
     Route: 048
     Dates: start: 20060503, end: 20060507
  4. LAMICTAL [Suspect]
     Indication: HYPOMANIA
     Dosage: 12.5 MG, ORAL; 25 MG, ORAL
     Route: 048
     Dates: start: 20060508, end: 20060509
  5. LEVOTHYROXINE SODIUM [Suspect]
     Dosage: 75 UG, ORAL
     Route: 048
  6. NORVASC [Suspect]
     Dosage: 5 MG, ORAL
     Route: 048

REACTIONS (1)
  - TREMOR [None]
